FAERS Safety Report 6278084-8 (Version None)
Quarter: 2009Q3

REPORT INFORMATION
  Report Type: 
  Country: None (occurrence: None)
  Receive Date: 20090722
  Receipt Date: 20090714
  Transmission Date: 20100115
  Serious: Yes (Hospitalization)
  Sender: FDA-Public Use
  Company Number: AU-JNJFOC-20090705016

PATIENT
  Sex: Male
  Weight: 3.1 kg

DRUGS (7)
  1. TOPIRAMATE [Suspect]
     Indication: DRUG EXPOSURE VIA BREAST MILK
  2. LEVETIRACETAM [Concomitant]
     Indication: DRUG EXPOSURE VIA BREAST MILK
  3. CLONAZEPAM [Concomitant]
     Indication: DRUG EXPOSURE VIA BREAST MILK
  4. MULTI-VITAMINS [Concomitant]
     Indication: DRUG EXPOSURE DURING PREGNANCY
  5. FOLIC ACID [Concomitant]
     Indication: DRUG EXPOSURE VIA BREAST MILK
  6. ADALAT [Concomitant]
     Indication: DRUG EXPOSURE DURING PREGNANCY
     Route: 064
  7. VENTOLIN [Concomitant]
     Indication: DRUG EXPOSURE DURING PREGNANCY
     Route: 064

REACTIONS (2)
  - DRUG EXPOSURE VIA BREAST MILK [None]
  - PREMATURE BABY [None]
